FAERS Safety Report 23515079 (Version 1)
Quarter: 2024Q1

REPORT INFORMATION
  Report Type: Report from Study
  Country: US (occurrence: US)
  Receive Date: 20240212
  Receipt Date: 20240212
  Transmission Date: 20240410
  Serious: Yes (Other)
  Sender: FDA-Public Use
  Company Number: US-ABBVIE-5630772

PATIENT
  Age: 70 Year
  Sex: Male

DRUGS (1)
  1. SKYRIZI [Suspect]
     Active Substance: RISANKIZUMAB-RZAA
     Indication: Psoriasis
     Route: 058
     Dates: start: 202305

REACTIONS (4)
  - Squamous cell carcinoma of the tongue [Not Recovered/Not Resolved]
  - Tonsil cancer [Unknown]
  - Transient ischaemic attack [Unknown]
  - Lymphoma [Unknown]

NARRATIVE: CASE EVENT DATE: 20231001
